FAERS Safety Report 24160296 (Version 3)
Quarter: 2024Q3

REPORT INFORMATION
  Report Type: Report from Study
  Country: JP (occurrence: JP)
  Receive Date: 20240801
  Receipt Date: 20240831
  Transmission Date: 20241016
  Serious: Yes (Hospitalization, Other)
  Sender: ROCHE
  Company Number: JP-CHUGAI-2024025385AA

PATIENT
  Age: 65 Year
  Sex: Female
  Weight: 62.7 kg

DRUGS (2)
  1. TECENTRIQ [Suspect]
     Active Substance: ATEZOLIZUMAB
     Indication: Triple negative breast cancer
     Dosage: 840 MILLIGRAM
     Route: 042
     Dates: start: 20240417
  2. PACLITAXEL [Suspect]
     Active Substance: PACLITAXEL
     Indication: Triple negative breast cancer
     Dosage: 100 MILLIGRAM/SQ. METER
     Route: 042
     Dates: start: 20240417

REACTIONS (7)
  - Nausea [Recovered/Resolved]
  - Fatigue [Recovering/Resolving]
  - Constipation [Not Recovered/Not Resolved]
  - Neuropathy peripheral [Not Recovered/Not Resolved]
  - Stomatitis [Not Recovered/Not Resolved]
  - Pyrexia [Recovered/Resolved]
  - Kidney infection [Recovered/Resolved]

NARRATIVE: CASE EVENT DATE: 20240502
